FAERS Safety Report 21913649 (Version 1)
Quarter: 2023Q1

REPORT INFORMATION
  Report Type: Spontaneous
  Country: US (occurrence: US)
  Receive Date: 20230125
  Receipt Date: 20230125
  Transmission Date: 20230418
  Serious: No
  Sender: FDA-Public Use
  Company Number: US-ALLERGAN-2215302US

PATIENT
  Age: 61 Year
  Sex: Female

DRUGS (3)
  1. BOTOX COSMETIC [Suspect]
     Active Substance: ONABOTULINUMTOXINA
     Indication: Skin wrinkling
     Dosage: UNK UNK, SINGLE
     Dates: start: 20220415, end: 20220415
  2. BOTOX COSMETIC [Suspect]
     Active Substance: ONABOTULINUMTOXINA
     Indication: Skin wrinkling
     Dosage: UNK UNK, SINGLE
     Dates: start: 20220415, end: 20220415
  3. BOTOX COSMETIC [Suspect]
     Active Substance: ONABOTULINUMTOXINA
     Indication: Skin wrinkling
     Dosage: UNK UNK, SINGLE
     Dates: start: 20220415, end: 20220415

REACTIONS (7)
  - Nasopharyngitis [Not Recovered/Not Resolved]
  - Circumstance or information capable of leading to medication error [Unknown]
  - Multiple use of single-use product [Unknown]
  - Injection site rash [Not Recovered/Not Resolved]
  - Headache [Not Recovered/Not Resolved]
  - Eyelid ptosis [Not Recovered/Not Resolved]
  - Brow ptosis [Unknown]

NARRATIVE: CASE EVENT DATE: 20220415
